FAERS Safety Report 5901034-8 (Version None)
Quarter: 2008Q3

REPORT INFORMATION
  Report Type: 
  Country: None (occurrence: None)
  Receive Date: 20080925
  Receipt Date: 20080921
  Transmission Date: 20090109
  Serious: Yes (Death)
  Sender: FDA-Public Use
  Company Number: SPV1-2008-01953

PATIENT
  Age: 43 Year
  Sex: Female

DRUGS (1)
  1. FOSRENOL [Suspect]

REACTIONS (1)
  - MYOCARDIAL INFARCTION [None]
